FAERS Safety Report 24786159 (Version 1)
Quarter: 2024Q4

REPORT INFORMATION
  Report Type: Spontaneous
  Country: US (occurrence: US)
  Receive Date: 20241229
  Receipt Date: 20241229
  Transmission Date: 20250114
  Serious: No
  Sender: ARDELYX
  Company Number: US-ARDELYX-2024ARDX008614

PATIENT
  Age: 58 Year
  Sex: Female
  Weight: 84 kg

DRUGS (5)
  1. XPHOZAH [Suspect]
     Active Substance: TENAPANOR HYDROCHLORIDE
     Indication: Product used for unknown indication
     Dosage: UNK, QD (ONE TABLET)
     Route: 065
     Dates: start: 2024, end: 202411
  2. XPHOZAH [Suspect]
     Active Substance: TENAPANOR HYDROCHLORIDE
     Dosage: UNK, QD (HALF TABLET)
     Route: 065
     Dates: start: 20241203
  3. OMEPRAZOLE [Concomitant]
     Active Substance: OMEPRAZOLE
     Indication: Product used for unknown indication
     Route: 065
  4. INSULIN NOS [Concomitant]
     Active Substance: INSULIN NOS
     Indication: Product used for unknown indication
     Route: 065
  5. TUMS [Concomitant]
     Active Substance: CALCIUM CARBONATE
     Indication: Product used for unknown indication
     Dosage: UNK (EVERY MEAL)
     Route: 065

REACTIONS (4)
  - Pre-existing condition improved [Unknown]
  - Therapeutic response unexpected [Unknown]
  - Irritable bowel syndrome [Recovering/Resolving]
  - Diarrhoea [Recovered/Resolved]

NARRATIVE: CASE EVENT DATE: 20240101
